FAERS Safety Report 16025541 (Version 2)
Quarter: 2019Q2

REPORT INFORMATION
  Report Type: Report from Study
  Country: None (occurrence: US)
  Receive Date: 20190302
  Receipt Date: 20190409
  Transmission Date: 20190711
  Serious: Yes (Hospitalization, Other)
  Sender: FDA-Public Use
  Company Number: US-ABBVIE-19K-163-2686077-00

PATIENT
  Age: 33 Year
  Sex: Male
  Weight: 71.28 kg

DRUGS (3)
  1. HUMIRA [Suspect]
     Active Substance: ADALIMUMAB
     Indication: CROHN^S DISEASE
     Route: 058
     Dates: start: 2009, end: 2017
  2. SUBOXONE [Concomitant]
     Active Substance: BUPRENORPHINE HYDROCHLORIDE\NALOXONE HYDROCHLORIDE
     Indication: DRUG DEPENDENCE
  3. HUMIRA [Suspect]
     Active Substance: ADALIMUMAB
     Route: 058
     Dates: start: 20181217

REACTIONS (4)
  - Small intestinal obstruction [Unknown]
  - Therapeutic product effect decreased [Unknown]
  - Small intestinal resection [Unknown]
  - Psoriasis [Unknown]

NARRATIVE: CASE EVENT DATE: 201811
